FAERS Safety Report 7227535-0 (Version None)
Quarter: 2011Q1

REPORT INFORMATION
  Report Type: 
  Country: None (occurrence: None)
  Receive Date: 20110114
  Receipt Date: 20101227
  Transmission Date: 20110831
  Serious: Yes (Hospitalization)
  Sender: FDA-Public Use
  Company Number: US-BAYER-200935617NA

PATIENT
  Sex: Female

DRUGS (16)
  1. HYOSCYAMINE [Concomitant]
     Dosage: 0.375 ER
     Dates: start: 20060101
  2. UNCODEABLE ^UNCLASSIFIABLE^ [Concomitant]
     Dosage: 2 MG, UNK
     Dates: start: 20070101
  3. RANITIDINE HCL [Concomitant]
     Dosage: 150 MG, UNK
     Dates: start: 20080101
  4. WELCHOL [Concomitant]
     Dosage: 625 MG, UNK
     Dates: start: 20090101
  5. UNCODEABLE ^UNCLASSIFIABLE^ [Concomitant]
     Dosage: 100 MG, UNK
     Dates: start: 20070101
  6. UNCODEABLE ^UNCLASSIFIABLE^ [Concomitant]
     Dosage: UNK
     Dates: start: 20080101
  7. CLARITHROMYCIN [Concomitant]
     Dosage: 500 MG, UNK
     Dates: start: 20080101
  8. YASMIN [Suspect]
     Indication: PRODUCT USED FOR UNKNOWN INDICATION
     Route: 048
     Dates: start: 20040601, end: 20061101
  9. AMOXICILLIN [Concomitant]
     Dosage: 500 MG, UNK
     Dates: start: 20080101
  10. DICYCLOMINE [Concomitant]
     Dosage: 20 MG, UNK
     Dates: start: 20080101
  11. UNCODEABLE ^UNCLASSIFIABLE^ [Concomitant]
     Dosage: 5/500MG
     Dates: start: 20080101
  12. CYCLOBENZAPRINE [Concomitant]
     Dosage: 10 MG, UNK
     Dates: start: 20090101
  13. UNCODEABLE ^UNCLASSIFIABLE^ [Concomitant]
     Dosage: 25 MG, UNK
     Dates: start: 20090101
  14. YAZ [Suspect]
     Indication: PRODUCT USED FOR UNKNOWN INDICATION
     Route: 048
     Dates: start: 20061101, end: 20091101
  15. UNCODEABLE ^UNCLASSIFIABLE^ [Concomitant]
     Dosage: 10 MG, UNK
     Dates: start: 20080101
  16. ETODOLAC [Concomitant]
     Dosage: 400 MG, UNK
     Dates: start: 20080101

REACTIONS (1)
  - GALLBLADDER INJURY [None]
